FAERS Safety Report 8020563-7 (Version None)
Quarter: 2012Q1

REPORT INFORMATION
  Report Type: 
  Country: None (occurrence: None)
  Receive Date: 20120103
  Receipt Date: 20111227
  Transmission Date: 20120608
  Serious: Yes (Hospitalization, Disabling)
  Sender: FDA-Public Use
  Company Number: JP-MERCK-1108USA03606

PATIENT
  Age: 46 Year
  Sex: Male

DRUGS (2)
  1. JANUVIA [Suspect]
     Route: 048
     Dates: start: 20110101, end: 20110701
  2. JANUVIA [Suspect]
     Indication: DIABETES MELLITUS
     Route: 048
     Dates: start: 20110714, end: 20110812

REACTIONS (5)
  - ALTERED STATE OF CONSCIOUSNESS [None]
  - FALL [None]
  - CONTUSION [None]
  - FACIAL BONES FRACTURE [None]
  - HYPOGLYCAEMIA [None]
